FAERS Safety Report 9133035 (Version 1)
Quarter: 2013Q1

REPORT INFORMATION
  Report Type: Spontaneous
  Country: FR (occurrence: FR)
  Receive Date: 20130128
  Receipt Date: 20130128
  Transmission Date: 20140127
  Serious: Yes (Hospitalization, Other)
  Sender: FDA-Public Use
  Company Number: FR-PFIZER INC-2013032061

PATIENT
  Age: 85 Year
  Sex: Female

DRUGS (6)
  1. OLMESARTAN MEDOXOMIL [Suspect]
     Indication: HYPERTENSION
     Dosage: 20 MG, 1X/DAY
     Route: 048
     Dates: end: 20120903
  2. TAHOR [Suspect]
     Dosage: 10 MG, 1X/DAY
     Route: 048
     Dates: end: 20120903
  3. CYCLO 3 [Suspect]
     Dosage: 1 DF, 2X/DAY
     Route: 048
     Dates: end: 20120904
  4. LAMALINE [Suspect]
     Dosage: 2 DF, 3X/DAY
     Route: 048
     Dates: end: 20120904
  5. LISINOPRIL [Suspect]
     Dosage: 20 MG, 1X/DAY
     Route: 048
     Dates: end: 20120907
  6. ZANIDIP [Suspect]
     Dosage: 10 MG, 1X/DAY
     Route: 048
     Dates: end: 20120903

REACTIONS (5)
  - Leukocytoclastic vasculitis [Not Recovered/Not Resolved]
  - Diarrhoea [Not Recovered/Not Resolved]
  - Blood creatinine increased [Unknown]
  - Cytomegalovirus test positive [Unknown]
  - Epstein-Barr virus test positive [Unknown]
